FAERS Safety Report 4886637-4 (Version None)
Quarter: 2006Q1

REPORT INFORMATION
  Report Type: 
  Country: None (occurrence: None)
  Receive Date: 20060119
  Receipt Date: 20060110
  Transmission Date: 20060701
  Serious: Yes (Hospitalization, Other)
  Sender: FDA-Public Use
  Company Number: 2005-10-1490

PATIENT
  Age: 62 Year
  Sex: Male
  Weight: 73 kg

DRUGS (14)
  1. TEMODAL [Suspect]
     Indication: LUNG NEOPLASM MALIGNANT
     Dosage: 75 MG/M^2 ORAL
     Route: 048
     Dates: start: 20050701, end: 20050716
  2. TEMODAL [Suspect]
     Indication: METASTASES TO CENTRAL NERVOUS SYSTEM
     Dosage: 75 MG/M^2 ORAL
     Route: 048
     Dates: start: 20050701, end: 20050716
  3. CISPLATIN [Suspect]
     Indication: LARGE CELL LUNG CANCER STAGE IV
     Dosage: SEE IMAGE
     Dates: start: 20050712, end: 20050712
  4. CISPLATIN [Suspect]
     Indication: LARGE CELL LUNG CANCER STAGE IV
     Dosage: SEE IMAGE
     Dates: start: 20050801, end: 20050801
  5. CISPLATIN [Suspect]
     Indication: LARGE CELL LUNG CANCER STAGE IV
     Dosage: SEE IMAGE
     Dates: start: 20050712, end: 20050913
  6. CISPLATIN [Suspect]
     Indication: LARGE CELL LUNG CANCER STAGE IV
     Dosage: SEE IMAGE
     Dates: start: 20050913, end: 20050913
  7. GEMZAR [Suspect]
     Indication: LARGE CELL LUNG CANCER STAGE IV
     Dosage: SEE IMAGE
     Dates: start: 20050801, end: 20050801
  8. GEMZAR [Suspect]
     Indication: LARGE CELL LUNG CANCER STAGE IV
     Dosage: SEE IMAGE
     Dates: start: 20050801, end: 20050913
  9. GEMZAR [Suspect]
     Indication: LARGE CELL LUNG CANCER STAGE IV
     Dosage: SEE IMAGE
     Dates: start: 20050913, end: 20050913
  10. MEDROL [Suspect]
     Dosage: SEE IMAGE
     Dates: start: 20050713, end: 20050727
  11. MEDROL [Suspect]
     Dosage: SEE IMAGE
     Dates: start: 20050818, end: 20050830
  12. MEDROL [Suspect]
     Dosage: SEE IMAGE
     Dates: start: 20050713
  13. MEDROL [Suspect]
     Dosage: SEE IMAGE
     Dates: start: 20050831
  14. TAXOL [Concomitant]

REACTIONS (13)
  - AMYOTROPHY [None]
  - ASTHENIA [None]
  - DUODENAL ULCER [None]
  - HIATUS HERNIA [None]
  - INTERNATIONAL NORMALISED RATIO INCREASED [None]
  - MUSCULOSKELETAL CHEST PAIN [None]
  - MYOPATHY STEROID [None]
  - OEDEMA PERIPHERAL [None]
  - OESOPHAGEAL CANDIDIASIS [None]
  - OESOPHAGITIS [None]
  - PANCYTOPENIA [None]
  - PYREXIA [None]
  - VENOUS THROMBOSIS [None]
